FAERS Safety Report 12104575 (Version 2)
Quarter: 2016Q1

REPORT INFORMATION
  Report Type: Spontaneous
  Country: US (occurrence: US)
  Receive Date: 20160223
  Receipt Date: 20160329
  Transmission Date: 20160526
  Serious: Yes (Hospitalization)
  Sender: FDA-Public Use
  Company Number: US-PFIZER INC-2016101810

PATIENT
  Age: 73 Year
  Sex: Female
  Weight: 73 kg

DRUGS (6)
  1. PEPCID [Concomitant]
     Active Substance: FAMOTIDINE
     Indication: GASTROOESOPHAGEAL REFLUX DISEASE
  2. PHENERGAN [Concomitant]
     Active Substance: PROMETHAZINE HYDROCHLORIDE
  3. CELEBREX [Concomitant]
     Active Substance: CELECOXIB
  4. TRAMADOL. [Concomitant]
     Active Substance: TRAMADOL
  5. LYRICA [Suspect]
     Active Substance: PREGABALIN
     Indication: FIBROMYALGIA
     Dosage: 50 MG, 3X/DAY
     Dates: end: 201511
  6. PREDNISONE. [Concomitant]
     Active Substance: PREDNISONE
     Indication: ARTHRITIS

REACTIONS (11)
  - Peripheral swelling [Recovered/Resolved]
  - Blood potassium decreased [Recovered/Resolved]
  - Drug hypersensitivity [Recovered/Resolved]
  - Mouth swelling [Recovered/Resolved]
  - Eye swelling [Recovered/Resolved]
  - Dehydration [Recovered/Resolved]
  - Drug ineffective [Unknown]
  - Swollen tongue [Recovered/Resolved]
  - Gingival swelling [Recovered/Resolved]
  - Dysphagia [Recovered/Resolved]
  - Feeling abnormal [Recovered/Resolved]
